FAERS Safety Report 4699818-X (Version None)
Quarter: 2005Q2

REPORT INFORMATION
  Report Type: 
  Country: None (occurrence: None)
  Receive Date: 20050623
  Receipt Date: 20050616
  Transmission Date: 20051028
  Serious: Yes (Hospitalization)
  Sender: FDA-Public Use
  Company Number: 2005076747

PATIENT
  Age: 53 Year
  Sex: Male
  Weight: 74.8435 kg

DRUGS (4)
  1. BEXTRA [Suspect]
     Indication: PARALYSIS
     Dosage: 20 MG (10 MG, 2 IN 1 D), ORAL
     Route: 048
     Dates: start: 20030101, end: 20050101
  2. POTASSIUM (POTASSIUM) [Concomitant]
  3. ATENOLOL [Concomitant]
  4. ALPRAZOLAM [Concomitant]

REACTIONS (14)
  - ABDOMINAL DISCOMFORT [None]
  - BLOOD PRESSURE INCREASED [None]
  - DYSARTHRIA [None]
  - DYSPNOEA [None]
  - HEADACHE [None]
  - HYPOAESTHESIA [None]
  - JOINT CONTRACTURE [None]
  - MUSCLE TWITCHING [None]
  - NAUSEA [None]
  - PAIN IN EXTREMITY [None]
  - PARAESTHESIA [None]
  - TREMOR [None]
  - UNEVALUABLE EVENT [None]
  - VOMITING [None]
